FAERS Safety Report 20709272 (Version 2)
Quarter: 2022Q3

REPORT INFORMATION
  Report Type: Spontaneous
  Country: PL (occurrence: PL)
  Receive Date: 20220414
  Receipt Date: 20220713
  Transmission Date: 20221027
  Serious: Yes (Other)
  Sender: FDA-Public Use
  Company Number: PL-GSKCCFEMEA-Case-01465533_AE-56838

PATIENT

DRUGS (1)
  1. FLUTICASONE PROPIONATE [Suspect]
     Active Substance: FLUTICASONE PROPIONATE
     Indication: Product used for unknown indication
     Dosage: 250 UG
     Route: 055
     Dates: start: 20220406

REACTIONS (6)
  - Anaphylactic reaction [Unknown]
  - Hypersensitivity [Unknown]
  - Rash pustular [Unknown]
  - Pruritus [Unknown]
  - Peripheral swelling [Unknown]
  - Joint swelling [Unknown]
